FAERS Safety Report 6569608-1 (Version None)
Quarter: 2010Q1

REPORT INFORMATION
  Report Type: 
  Country: None (occurrence: None)
  Receive Date: 20100204
  Receipt Date: 20100122
  Transmission Date: 20100710
  Serious: Yes (Hospitalization, Other)
  Sender: FDA-Public Use
  Company Number: BE-CELGENEUS-013-50794-09051872

PATIENT
  Sex: Female

DRUGS (1)
  1. VIDAZA [Suspect]
     Indication: MYELODYSPLASTIC SYNDROME TRANSFORMATION
     Route: 065
     Dates: start: 20090313

REACTIONS (2)
  - FEBRILE NEUTROPENIA [None]
  - PNEUMOCYSTIS JIROVECI INFECTION [None]
